FAERS Safety Report 21722736 (Version 4)
Quarter: 2023Q1

REPORT INFORMATION
  Report Type: Spontaneous
  Country: US (occurrence: US)
  Receive Date: 20221213
  Receipt Date: 20230106
  Transmission Date: 20230418
  Serious: No
  Sender: FDA-Public Use
  Company Number: US-PFIZER INC-PV202200121102

PATIENT
  Age: 52 Year
  Sex: Female

DRUGS (1)
  1. IBRANCE [Suspect]
     Active Substance: PALBOCICLIB
     Dosage: 75 MG

REACTIONS (7)
  - Hepatic function abnormal [Unknown]
  - Somnolence [Unknown]
  - Fatigue [Unknown]
  - Laboratory test abnormal [Unknown]
  - Cough [Unknown]
  - Hypopnoea [Unknown]
  - Hepatic enzyme increased [Unknown]
